FAERS Safety Report 9797954 (Version 1)
Quarter: 2014Q1

REPORT INFORMATION
  Report Type: Spontaneous
  Country: US (occurrence: None)
  Receive Date: 20140102
  Receipt Date: 20140102
  Transmission Date: 20141002
  Serious: Yes (Hospitalization, Other)
  Sender: FDA-Public Use
  Company Number: None

PATIENT
  Age: 32 Year
  Sex: Male
  Weight: 78.3 kg

DRUGS (1)
  1. LEVOFLOXACIN [Suspect]
     Indication: UPPER RESPIRATORY TRACT INFECTION
     Route: 042
     Dates: start: 20130318, end: 20130318

REACTIONS (1)
  - Convulsion [None]
